FAERS Safety Report 6672694-1 (Version None)
Quarter: 2010Q2

REPORT INFORMATION
  Report Type: 
  Country: None (occurrence: None)
  Receive Date: 20100408
  Receipt Date: 20100406
  Transmission Date: 20101027
  Serious: Yes (Hospitalization)
  Sender: FDA-Public Use
  Company Number: SE-ROCHE-692025

PATIENT
  Age: 44 Year
  Sex: Female

DRUGS (2)
  1. ROACTEMRA [Suspect]
     Indication: RHEUMATOID ARTHRITIS
     Dosage: FORM: INFUSION
     Route: 042
     Dates: start: 20090218, end: 20100218
  2. PREDNISOLON [Concomitant]
     Dosage: DRUG: PREDNISOLON PFIZER TABLET 5MG

REACTIONS (1)
  - PNEUMONIA [None]
